FAERS Safety Report 9789098 (Version 5)
Quarter: 2014Q2

REPORT INFORMATION
  Report Type: Report from Study
  Country: US (occurrence: US)
  Receive Date: 20131230
  Receipt Date: 20140526
  Transmission Date: 20141212
  Serious: Yes (Hospitalization, Disabling)
  Sender: FDA-Public Use
  Company Number: US-ACTELION-A-US2013-93062

PATIENT
  Age: 74 Year
  Sex: Female
  Weight: 58.96 kg

DRUGS (6)
  1. VENTAVIS [Suspect]
     Indication: PULMONARY ARTERIAL HYPERTENSION
     Dosage: 5 UNK, UNK
     Route: 055
     Dates: start: 20121003
  2. TRACLEER [Suspect]
     Indication: PULMONARY ARTERIAL HYPERTENSION
     Dosage: 62.5 MG, BID
     Route: 048
  3. COUMADIN [Concomitant]
     Dosage: 2.5 MG, UNK
     Route: 048
  4. LEVOTHYROXINE [Concomitant]
     Dosage: 75 UNK, UNK
     Route: 048
  5. NEXIUM [Concomitant]
     Dosage: 40 MG, BID
     Route: 048
  6. PROMETHAZINE VC [Concomitant]
     Dosage: 1 ML, 6.25MG -5 MG/5 ML SYRUP
     Route: 048

REACTIONS (9)
  - Anaemia [Unknown]
  - Cardiac disorder [Recovered/Resolved]
  - Peripheral swelling [Unknown]
  - Weight increased [Unknown]
  - Transfusion [Unknown]
  - Hepatic enzyme increased [Recovered/Resolved]
  - Dyspnoea exertional [Unknown]
  - Generalised oedema [Unknown]
  - Drug dose omission [Unknown]
